FAERS Safety Report 18498700 (Version 2)
Quarter: 2020Q4

REPORT INFORMATION
  Report Type: Report from Study
  Country: IT (occurrence: IT)
  Receive Date: 20201112
  Receipt Date: 20201208
  Transmission Date: 20210114
  Serious: Yes (Hospitalization)
  Sender: FDA-Public Use
  Company Number: IT-TEVA-2020-IT-1847383

PATIENT
  Age: 67 Year
  Sex: Female
  Weight: 98 kg

DRUGS (4)
  1. SETOFILM 4 MG FILM ORODISPERSIBILI [Concomitant]
     Route: 048
  2. NEBIVOLOLO E IDROCLOROTIAZIDE DOC GENERICI 5 MG/12,5 MG COMPRESSE RIVE [Concomitant]
     Route: 048
  3. CISPLATINO TEVA ITALIA 1 MG/ML CONCENTRATO PER SOLUZIONE PER INFUSIONE [Suspect]
     Active Substance: CISPLATIN
     Indication: CHEMOTHERAPY
     Dosage: UNIT DOSE 120MG
     Route: 042
     Dates: start: 20200416, end: 20200528
  4. SOLDESAM [Concomitant]
     Active Substance: DEXAMETHASONE
     Route: 030

REACTIONS (3)
  - Drug hypersensitivity [Recovered/Resolved]
  - Erythema [Recovered/Resolved]
  - Urticaria [Recovered/Resolved]

NARRATIVE: CASE EVENT DATE: 20200528
